FAERS Safety Report 21131130 (Version 1)
Quarter: 2022Q3

REPORT INFORMATION
  Report Type: Spontaneous
  Country: GB (occurrence: GB)
  Receive Date: 20220726
  Receipt Date: 20220726
  Transmission Date: 20221027
  Serious: Yes (Other)
  Sender: FDA-Public Use
  Company Number: None

PATIENT
  Age: 77 Year
  Sex: Female
  Weight: 71 kg

DRUGS (15)
  1. ATORVASTATIN [Suspect]
     Active Substance: ATORVASTATIN
     Dates: start: 20220125
  2. BETAHISTINE [Concomitant]
     Active Substance: BETAHISTINE
     Dates: start: 20200616
  3. CETIRIZINE [Concomitant]
     Active Substance: CETIRIZINE HYDROCHLORIDE
     Dates: start: 20190814
  4. FEXOFENADINE [Concomitant]
     Active Substance: FEXOFENADINE HYDROCHLORIDE
     Dates: start: 20210505
  5. BECLOMETHASONE\FORMOTEROL [Concomitant]
     Active Substance: BECLOMETHASONE\FORMOTEROL
     Dates: start: 20181213
  6. IBUPROFEN [Concomitant]
     Active Substance: IBUPROFEN
     Dosage: APPLY 3-4 TIMES/DAY
     Dates: start: 20190711
  7. LACTULOSE [Concomitant]
     Active Substance: LACTULOSE
     Dates: start: 20070821
  8. LEVOTHYROXINE [Concomitant]
     Active Substance: LEVOTHYROXINE
     Dates: start: 20180820
  9. LISINOPRIL [Concomitant]
     Active Substance: LISINOPRIL
     Dates: start: 20200309
  10. FENTANYL [Concomitant]
     Active Substance: FENTANYL
     Dates: start: 20190710
  11. MONTELUKAST [Concomitant]
     Active Substance: MONTELUKAST SODIUM
     Dates: start: 20190611
  12. OMEPRAZOLE [Concomitant]
     Active Substance: OMEPRAZOLE
     Dates: start: 20170922
  13. OTOMIZE [Concomitant]
     Dosage: 1 SPRAY LEFT EAR
     Dates: start: 20070621
  14. PROCHLORPERAZINE. [Concomitant]
     Indication: Nausea
     Dates: start: 20220323, end: 20220420
  15. REMINYL [Concomitant]
     Active Substance: GALANTAMINE
     Dates: start: 20151105

REACTIONS (1)
  - Hallucination [Recovered/Resolved]

NARRATIVE: CASE EVENT DATE: 20220527
